FAERS Safety Report 20769096 (Version 1)
Quarter: 2022Q2

REPORT INFORMATION
  Report Type: Spontaneous
  Country: US (occurrence: US)
  Receive Date: 20220429
  Receipt Date: 20220429
  Transmission Date: 20220721
  Serious: No
  Sender: FDA-Public Use
  Company Number: US-APOTEX-2022AP006077

PATIENT
  Sex: Male

DRUGS (1)
  1. IPRATROPIUM BROMIDE [Suspect]
     Active Substance: IPRATROPIUM BROMIDE
     Indication: Product used for unknown indication
     Dosage: 2 SPRAYS IN EACH NOSTRIL, 4 TIMES A DAY
     Route: 045

REACTIONS (7)
  - Pain in extremity [Unknown]
  - Product design issue [Unknown]
  - Product use complaint [Unknown]
  - Incorrect dose administered [Unknown]
  - Product container issue [Unknown]
  - Product delivery mechanism issue [Unknown]
  - Therapeutic product effect decreased [Unknown]
